FAERS Safety Report 25032311 (Version 1)
Quarter: 2025Q1

REPORT INFORMATION
  Report Type: Spontaneous
  Country: DK (occurrence: DK)
  Receive Date: 20250303
  Receipt Date: 20250303
  Transmission Date: 20250409
  Serious: Yes (Hospitalization, Other)
  Sender: BAXTER
  Company Number: DK-BAXTER-2025BAX011957

PATIENT
  Age: 53 Year
  Sex: Male

DRUGS (4)
  1. CYCLOPHOSPHAMIDE [Suspect]
     Active Substance: CYCLOPHOSPHAMIDE
     Indication: Plasma cell myeloma
     Route: 065
     Dates: start: 20250115, end: 20250115
  2. BORTEZOMIB [Suspect]
     Active Substance: BORTEZOMIB
     Indication: Plasma cell myeloma
     Route: 058
     Dates: start: 20250115, end: 20250123
  3. DOXORUBICIN [Suspect]
     Active Substance: DOXORUBICIN
     Indication: Plasma cell myeloma
     Route: 065
     Dates: start: 20250115, end: 20250115
  4. ELRANATAMAB [Suspect]
     Active Substance: ELRANATAMAB
     Indication: Plasma cell myeloma
     Route: 058
     Dates: start: 20241125, end: 20250106

REACTIONS (5)
  - COVID-19 [Recovered/Resolved]
  - Pyrexia [Unknown]
  - Sepsis [Recovered/Resolved]
  - Alpha haemolytic streptococcal infection [Unknown]
  - Disease progression [Unknown]

NARRATIVE: CASE EVENT DATE: 20250125
